FAERS Safety Report 5309537-4 (Version None)
Quarter: 2007Q2

REPORT INFORMATION
  Report Type: 
  Country: None (occurrence: None)
  Receive Date: 20070427
  Receipt Date: 20060918
  Transmission Date: 20071010
  Serious: No
  Sender: FDA-Public Use
  Company Number: US-GLAXOSMITHKLINE-A0620555A

PATIENT
  Age: 54 Year
  Sex: Female

DRUGS (2)
  1. DEXEDRINE [Suspect]
     Dosage: 5MG FOUR TIMES PER DAY
     Route: 048
  2. UNSPECIFIED MEDICATIONS [Concomitant]

REACTIONS (2)
  - STOMACH DISCOMFORT [None]
  - TREMOR [None]
